FAERS Safety Report 13841262 (Version 1)
Quarter: 2017Q3

REPORT INFORMATION
  Report Type: Report from Study
  Country: US (occurrence: US)
  Receive Date: 20170807
  Receipt Date: 20170807
  Transmission Date: 20171127
  Serious: Yes (Hospitalization)
  Sender: FDA-Public Use
  Company Number: US-EXELIXIS-CABO-17010028

PATIENT
  Sex: Male

DRUGS (21)
  1. VITAMIN D [Concomitant]
     Active Substance: CHOLECALCIFEROL
  2. MULTIVITAMIN [Concomitant]
     Active Substance: VITAMINS
  3. CABOMETYX [Suspect]
     Active Substance: CABOZANTINIB S-MALATE
     Indication: RENAL CANCER
     Dosage: 40 MG, QD
     Route: 048
     Dates: start: 20161019
  4. LEVOTHYROXINE. [Concomitant]
     Active Substance: LEVOTHYROXINE
  5. TAMSULOSIN [Concomitant]
     Active Substance: TAMSULOSIN
  6. OMEPRAZOLE. [Concomitant]
     Active Substance: OMEPRAZOLE
  7. HYDROCODONE [Concomitant]
     Active Substance: HYDROCODONE
  8. LANSOPRAZOLE. [Concomitant]
     Active Substance: LANSOPRAZOLE
  9. CABOMETYX [Suspect]
     Active Substance: CABOZANTINIB S-MALATE
     Indication: METASTASES TO LIVER
  10. CITALOPRAM [Concomitant]
     Active Substance: CITALOPRAM HYDROBROMIDE
  11. OXYCODONE [Concomitant]
     Active Substance: OXYCODONE
  12. DOXYCYCLINE. [Concomitant]
     Active Substance: DOXYCYCLINE
  13. ASPIRIN. [Concomitant]
     Active Substance: ASPIRIN
  14. FERROUS SULFATE. [Concomitant]
     Active Substance: FERROUS SULFATE
  15. AMLODIPINE [Concomitant]
     Active Substance: AMLODIPINE BESYLATE
  16. LANTUS [Concomitant]
     Active Substance: INSULIN GLARGINE
  17. ONDANSETRON [Concomitant]
     Active Substance: ONDANSETRON
  18. FISH OIL [Concomitant]
     Active Substance: FISH OIL
  19. GABAPENTIN. [Concomitant]
     Active Substance: GABAPENTIN
  20. HUMALOG [Concomitant]
     Active Substance: INSULIN LISPRO
  21. MORPHINE [Concomitant]
     Active Substance: MORPHINE

REACTIONS (1)
  - Cholelithiasis [Unknown]
